FAERS Safety Report 24006409 (Version 2)
Quarter: 2024Q3

REPORT INFORMATION
  Report Type: Spontaneous
  Country: GB (occurrence: GB)
  Receive Date: 20240624
  Receipt Date: 20240704
  Transmission Date: 20241016
  Serious: No
  Sender: ORGANON
  Company Number: None

PATIENT
  Sex: Female

DRUGS (1)
  1. NEXPLANON [Suspect]
     Active Substance: ETONOGESTREL
     Dosage: 68 MILLIGRAMS, 1 IMPLANT IN ARM
     Route: 059
     Dates: start: 2022

REACTIONS (1)
  - Pregnancy test false positive [Unknown]
